FAERS Safety Report 16601645 (Version 2)
Quarter: 2019Q3

REPORT INFORMATION
  Report Type: Spontaneous
  Country: EG (occurrence: EG)
  Receive Date: 20190719
  Receipt Date: 20190725
  Transmission Date: 20191004
  Serious: Yes (Death)
  Sender: FDA-Public Use
  Company Number: EG-NOVOPROD-673087

PATIENT
  Age: 69 Year
  Sex: Male
  Weight: 120 kg

DRUGS (2)
  1. MIXTARD 30 HM PENFILL [Suspect]
     Active Substance: INSULIN HUMAN
     Indication: TYPE 1 DIABETES MELLITUS
     Dosage: 45 IU, QD(30U AM,15U PM) STARTED 6 MONTH AGO
     Route: 058
     Dates: end: 20190627
  2. GLUCOPHAGE [Concomitant]
     Active Substance: METFORMIN HYDROCHLORIDE
     Indication: TYPE 1 DIABETES MELLITUS
     Dosage: UNK ONCE AFTER LUNCH MEAL
     Route: 048

REACTIONS (3)
  - Hypertension [Fatal]
  - Obesity [Fatal]
  - Hepatic function abnormal [Fatal]
